FAERS Safety Report 4695254-0 (Version None)
Quarter: 2005Q2

REPORT INFORMATION
  Report Type: 
  Country: None (occurrence: None)
  Receive Date: 20050613
  Receipt Date: 20050301
  Transmission Date: 20051028
  Serious: Yes (Other)
  Sender: FDA-Public Use
  Company Number: 2005-00401

PATIENT
  Sex: 0

DRUGS (1)
  1. VELCADE [Suspect]
     Route: 065

REACTIONS (1)
  - RASH [None]
